FAERS Safety Report 7788312-5 (Version None)
Quarter: 2011Q3

REPORT INFORMATION
  Report Type: 
  Country: None (occurrence: None)
  Receive Date: 20110930
  Receipt Date: 20110922
  Transmission Date: 20111222
  Serious: Yes (Hospitalization)
  Sender: FDA-Public Use
  Company Number: JP-ASTELLAS-2011US005753

PATIENT
  Sex: Male

DRUGS (1)
  1. AMBISOME [Suspect]
     Indication: BRONCHOPULMONARY ASPERGILLOSIS
     Dosage: UNK
     Route: 042
     Dates: start: 20110809, end: 20110827

REACTIONS (4)
  - PLEURAL EFFUSION [None]
  - CHOLECYSTITIS [None]
  - CARDIAC FAILURE [None]
  - HYPOKALAEMIA [None]
